FAERS Safety Report 12153147 (Version 2)
Quarter: 2016Q2

REPORT INFORMATION
  Report Type: Other
  Country: FR (occurrence: FR)
  Receive Date: 20160305
  Receipt Date: 20160519
  Transmission Date: 20160815
  Serious: Yes (Hospitalization)
  Sender: FDA-Public Use
  Company Number: FR-HQ SPECIALTY-FR-2016INT000088

PATIENT
  Age: 8 Year
  Sex: Female

DRUGS (4)
  1. METHOTREXATE SODIUM. [Suspect]
     Active Substance: METHOTREXATE SODIUM
     Indication: ACUTE LYMPHOCYTIC LEUKAEMIA
     Dosage: 25 MG, 1 IN 1 W
     Route: 048
     Dates: start: 20141030, end: 20151218
  2. METHOTREXATE SODIUM. [Suspect]
     Active Substance: METHOTREXATE SODIUM
     Dosage: 30 MG, 1 IN 1 W
     Route: 048
     Dates: start: 20151218, end: 20160120
  3. PURINETHOL [Suspect]
     Active Substance: MERCAPTOPURINE
     Indication: ACUTE LYMPHOCYTIC LEUKAEMIA
     Dosage: 87.5 MG, 1 D
     Route: 048
     Dates: start: 20141030, end: 20151218
  4. PURINETHOL [Suspect]
     Active Substance: MERCAPTOPURINE
     Dosage: 112.5 MG, 1 D
     Route: 048
     Dates: start: 20151218, end: 20160130

REACTIONS (3)
  - Product use issue [Unknown]
  - Hepatocellular injury [Recovered/Resolved]
  - Diarrhoea [Recovered/Resolved]

NARRATIVE: CASE EVENT DATE: 20151116
